FAERS Safety Report 4834309-4 (Version None)
Quarter: 2005Q4

REPORT INFORMATION
  Report Type: 
  Country: None (occurrence: None)
  Receive Date: 20051122
  Receipt Date: 20051013
  Transmission Date: 20060501
  Serious: Yes (Other)
  Sender: FDA-Public Use
  Company Number: US-ROCHE-421755

PATIENT
  Age: 27 Year
  Sex: Female

DRUGS (3)
  1. ACCUTANE [Suspect]
     Indication: ACNE CYSTIC
     Route: 065
     Dates: start: 19871221, end: 19880615
  2. ACCUTANE [Suspect]
     Route: 065
     Dates: start: 19900925
  3. MULTI-VITAMINS [Concomitant]
     Indication: VITAMIN SUPPLEMENTATION
     Route: 048

REACTIONS (5)
  - ABORTION MISSED [None]
  - ABORTION SPONTANEOUS INCOMPLETE [None]
  - BLIGHTED OVUM [None]
  - DRUG EXPOSURE BEFORE PREGNANCY [None]
  - PREGNANCY [None]
